FAERS Safety Report 24119374 (Version 2)
Quarter: 2024Q3

REPORT INFORMATION
  Report Type: Spontaneous
  Country: NL (occurrence: NL)
  Receive Date: 20240722
  Receipt Date: 20240809
  Transmission Date: 20241017
  Serious: Yes (Other)
  Sender: BAYER
  Company Number: None

PATIENT
  Age: 76 Year
  Sex: Male
  Weight: 75 kg

DRUGS (2)
  1. ALEVE [Suspect]
     Active Substance: NAPROXEN SODIUM
     Indication: Analgesic therapy
     Dosage: 220 MG, ONCE A DAY AS NEEDED
     Dates: start: 20231106, end: 20231106
  2. ALEVE [Suspect]
     Active Substance: NAPROXEN SODIUM
     Indication: Inflammation

REACTIONS (6)
  - Loss of consciousness [Recovering/Resolving]
  - Anaphylactic reaction [Recovering/Resolving]
  - Fall [Recovering/Resolving]
  - Balance disorder [Recovering/Resolving]
  - Pharyngeal swelling [Unknown]
  - Dyspnoea [Unknown]
